FAERS Safety Report 5400155-6 (Version None)
Quarter: 2007Q3

REPORT INFORMATION
  Report Type: 
  Country: None (occurrence: None)
  Receive Date: 20070730
  Receipt Date: 20070720
  Transmission Date: 20080115
  Serious: Yes (Other)
  Sender: FDA-Public Use
  Company Number: US-AMGEN-US216440

PATIENT
  Sex: Male

DRUGS (9)
  1. ENBREL [Suspect]
     Indication: PSORIASIS
     Route: 058
     Dates: start: 20060320, end: 20070127
  2. COREG [Concomitant]
     Route: 065
  3. PLENDIL [Concomitant]
     Route: 065
  4. LANOXIN [Concomitant]
     Route: 065
  5. COZAAR [Concomitant]
     Route: 065
  6. AVANDIA [Concomitant]
     Route: 065
  7. LEVOXYL [Concomitant]
     Route: 065
  8. LIPITOR [Concomitant]
     Route: 065
  9. CLOBETASOL PROPIONATE [Concomitant]
     Route: 061

REACTIONS (1)
  - TUBERCULOSIS [None]
